FAERS Safety Report 9770412 (Version 1)
Quarter: 2013Q4

REPORT INFORMATION
  Report Type: Spontaneous
  Country: US (occurrence: US)
  Receive Date: 20131218
  Receipt Date: 20131218
  Transmission Date: 20140711
  Serious: No
  Sender: FDA-Public Use
  Company Number: US-TEVA-448467USA

PATIENT
  Age: 34 Year
  Sex: Female
  Weight: 39.5 kg

DRUGS (1)
  1. PARAGARD 380A [Suspect]
     Indication: CONTRACEPTION
     Route: 015
     Dates: start: 20130412, end: 20131118

REACTIONS (1)
  - Device expulsion [Recovered/Resolved]
